FAERS Safety Report 4693175-0 (Version None)
Quarter: 2005Q2

REPORT INFORMATION
  Report Type: 
  Country: None (occurrence: None)
  Receive Date: 20050617
  Receipt Date: 20050408
  Transmission Date: 20051028
  Serious: Yes (Hospitalization)
  Sender: FDA-Public Use
  Company Number: FR-SANOFI-SYNTHELABO-A02200501082

PATIENT
  Sex: Male
  Weight: 90 kg

DRUGS (2)
  1. STILNOX [Suspect]
     Indication: INSOMNIA
     Route: 048
     Dates: start: 19880101, end: 20050101
  2. CIBADREX [Concomitant]
     Indication: HYPERTENSION
     Dosage: HYDROCHLOROTHIAZIDE : 12.5 MG+BENAZEPRIL : 10 MG
     Route: 048

REACTIONS (4)
  - ANTEROGRADE AMNESIA [None]
  - DISINHIBITION [None]
  - MANIA [None]
  - PERSECUTORY DELUSION [None]
